FAERS Safety Report 9910844 (Version 3)
Quarter: 2014Q1

REPORT INFORMATION
  Report Type: Spontaneous
  Country: TR (occurrence: TR)
  Receive Date: 20140219
  Receipt Date: 20140228
  Transmission Date: 20141002
  Serious: Yes (Other)
  Sender: FDA-Public Use
  Company Number: TR-PFIZER INC-2014044389

PATIENT
  Age: 30 Year
  Sex: Male
  Weight: 80 kg

DRUGS (1)
  1. EFEXOR XR [Suspect]
     Indication: DEPRESSION
     Dosage: UNK
     Dates: start: 2001

REACTIONS (1)
  - Aggression [Recovered/Resolved]
